FAERS Safety Report 24972175 (Version 1)
Quarter: 2025Q1

REPORT INFORMATION
  Report Type: Spontaneous
  Country: US (occurrence: None)
  Receive Date: 20250214
  Receipt Date: 20250214
  Transmission Date: 20250409
  Serious: Yes (Hospitalization)
  Sender: ALEXION PHARMACEUTICALS
  Company Number: US-AstraZeneca-2010SE50164

PATIENT

DRUGS (2)
  1. NEXIUM [Suspect]
     Active Substance: ESOMEPRAZOLE MAGNESIUM
  2. TOPROL XL [Suspect]
     Active Substance: METOPROLOL SUCCINATE

REACTIONS (2)
  - Rectal prolapse [Unknown]
  - Hypoacusis [Unknown]
